FAERS Safety Report 9462260 (Version 2)
Quarter: 2014Q2

REPORT INFORMATION
  Report Type: Spontaneous
  Country: US (occurrence: None)
  Receive Date: 20130813
  Receipt Date: 20140523
  Transmission Date: 20141212
  Serious: Yes (Life-Threatening)
  Sender: FDA-Public Use
  Company Number: 1835509

PATIENT
  Age: 56 Year
  Sex: Female

DRUGS (8)
  1. HYDROCORTISONE [Suspect]
     Indication: ADRENAL INSUFFICIENCY
  2. SODIUM CHLORIDE [Suspect]
     Indication: BLOOD PRESSURE
     Dosage: 2.5 1 LITRE(S) INTRAVENOUS
     Route: 040
  3. SODIUM CHLORIDE [Suspect]
     Indication: HYPOTENSION
     Dosage: 2.5 1 LITRE(S) INTRAVENOUS
     Route: 040
  4. DOPAMINE [Concomitant]
  5. NOREPINEPHRINE [Concomitant]
  6. PIPERACILLIN/TAZOBACTAM [Concomitant]
  7. VANCOMYCIN [Concomitant]
  8. FLUCONAZOLE [Concomitant]

REACTIONS (8)
  - Hyperaldosteronism [None]
  - Blood bicarbonate decreased [None]
  - Hypokalaemia [None]
  - Blood sodium decreased [None]
  - Blood creatinine increased [None]
  - Blood chloride increased [None]
  - Respiratory acidosis [None]
  - Hypomagnesaemia [None]
